FAERS Safety Report 5065267-8 (Version None)
Quarter: 2006Q3

REPORT INFORMATION
  Report Type: 
  Country: None (occurrence: None)
  Receive Date: 20060725
  Receipt Date: 20060713
  Transmission Date: 20061208
  Serious: Yes (Other)
  Sender: FDA-Public Use
  Company Number: 2006088984

PATIENT

DRUGS (4)
  1. CABERGOLINE [Suspect]
     Dosage: 6 MG, ORAL
     Route: 048
     Dates: start: 20060601
  2. ESCITALOPRAM (ESCITALOPRAM) [Suspect]
  3. LEVOTHYROXINE SODIUM [Suspect]
  4. ALL OTHER THERAPEUTIC PRODUCTS (ALL OTHER THERAPEUTIC PRODUCTS) [Concomitant]

REACTIONS (5)
  - GAIT DISTURBANCE [None]
  - OEDEMA PERIPHERAL [None]
  - PAIN [None]
  - SKIN DISCOLOURATION [None]
  - VENOUS OCCLUSION [None]
